FAERS Safety Report 17890107 (Version 1)
Quarter: 2020Q2

REPORT INFORMATION
  Report Type: Spontaneous
  Country: IT (occurrence: IT)
  Receive Date: 20200612
  Receipt Date: 20200612
  Transmission Date: 20200714
  Serious: Yes (Other)
  Sender: FDA-Public Use
  Company Number: IT-009507513-2006ITA001729

PATIENT
  Age: 79 Year
  Sex: Male
  Weight: 75 kg

DRUGS (2)
  1. PEMBROLIZUMAB. [Suspect]
     Active Substance: PEMBROLIZUMAB
     Dosage: 200 MILLIGRAM, FISRT LINE OF TREATMENT, FLAT DOSE EVERY 21 DAYS
     Route: 042
     Dates: end: 201901
  2. PEMBROLIZUMAB. [Suspect]
     Active Substance: PEMBROLIZUMAB
     Indication: NON-SMALL CELL LUNG CANCER
     Dosage: 200 MILLIGRAM, FISRT LINE OF TREATMENT, FLAT DOSE EVERY 21 DAYS
     Route: 042
     Dates: start: 20180116, end: 201812

REACTIONS (3)
  - Pleural effusion [Unknown]
  - Malignant neoplasm progression [Unknown]
  - Pericardial effusion [Recovered/Resolved]

NARRATIVE: CASE EVENT DATE: 201811
